FAERS Safety Report 5420746-6 (Version None)
Quarter: 2007Q3

REPORT INFORMATION
  Report Type: 
  Country: None (occurrence: None)
  Receive Date: 20070821
  Receipt Date: 20061004
  Transmission Date: 20080115
  Serious: Yes (Other)
  Sender: FDA-Public Use
  Company Number: US-BRISTOL-MYERS SQUIBB COMPANY-13532494

PATIENT
  Age: 65 Year
  Sex: Female

DRUGS (3)
  1. ESTRACE [Suspect]
     Indication: HORMONE THERAPY
     Dates: start: 19960201, end: 19960701
  2. PROVERA [Suspect]
     Indication: HORMONE THERAPY
     Dates: start: 19960201, end: 19960701
  3. PREMPRO [Suspect]
     Indication: HORMONE THERAPY
     Dates: start: 19960701, end: 20021201

REACTIONS (1)
  - BREAST CANCER [None]
